FAERS Safety Report 8830945 (Version 6)
Quarter: 2013Q3

REPORT INFORMATION
  Report Type: Report from Study
  Country: FR (occurrence: FR)
  Receive Date: 20121009
  Receipt Date: 20130919
  Transmission Date: 20140515
  Serious: Yes (Death, Hospitalization, Other)
  Sender: FDA-Public Use
  Company Number: FR-MPIJNJ-2012-06935

PATIENT
  Sex: 0

DRUGS (5)
  1. VELCADE [Suspect]
     Indication: PLASMA CELL MYELOMA
     Dosage: 2.4 MG, UNK
     Route: 042
     Dates: start: 20120915, end: 20120928
  2. CYCLOPHOSPHAMIDE [Suspect]
     Indication: PLASMA CELL MYELOMA
     Dosage: 1350 MG, UNK
     Route: 042
     Dates: start: 20120918, end: 20120918
  3. DEXAMETHASONE [Suspect]
     Indication: PLASMA CELL MYELOMA
     Dosage: 20 MG, UNK
     Route: 048
     Dates: start: 20120918, end: 20120929
  4. NEUPOGEN [Concomitant]
     Dosage: UNK
     Route: 058
     Dates: start: 20120928, end: 20120930
  5. PLAVIX                             /01220701/ [Concomitant]
     Dosage: 75 MG, UNK
     Route: 048
     Dates: start: 201209

REACTIONS (3)
  - Gastrointestinal haemorrhage [Fatal]
  - Thrombocytopenia [Fatal]
  - Bronchospasm [Recovered/Resolved]
